FAERS Safety Report 25704102 (Version 1)
Quarter: 2025Q3

REPORT INFORMATION
  Report Type: Report from Study
  Country: US (occurrence: US)
  Receive Date: 20250820
  Receipt Date: 20250820
  Transmission Date: 20251021
  Serious: Yes (Other)
  Sender: ABBVIE
  Company Number: US-ABBVIE-6299042

PATIENT
  Age: 59 Year
  Sex: Female

DRUGS (1)
  1. SKYRIZI [Suspect]
     Active Substance: RISANKIZUMAB-RZAA
     Indication: Crohn^s disease
     Route: 058

REACTIONS (10)
  - Central venous catheter removal [Unknown]
  - Clostridium difficile infection [Recovered/Resolved]
  - Pruritus [Unknown]
  - Diarrhoea [Unknown]
  - Polyp [Recovered/Resolved]
  - Polyp [Unknown]
  - Clostridium difficile infection [Recovered/Resolved]
  - Clostridium difficile infection [Unknown]
  - Gastrointestinal inflammation [Unknown]
  - Gastrointestinal disorder [Unknown]

NARRATIVE: CASE EVENT DATE: 20231001
